FAERS Safety Report 5132227-8 (Version None)
Quarter: 2006Q4

REPORT INFORMATION
  Report Type: 
  Country: None (occurrence: None)
  Receive Date: 20061017
  Receipt Date: 20061002
  Transmission Date: 20070319
  Serious: Yes (Death, Hospitalization, Other)
  Sender: FDA-Public Use
  Company Number: US200608003379

PATIENT
  Age: 58 Year
  Sex: Female
  Weight: 80 kg

DRUGS (5)
  1. GEMCITABINE [Suspect]
     Indication: TRANSITIONAL CELL CANCER OF RENAL PELVIS AND URETER METASTATIC
     Dosage: 1870 INTRAVENOUS ; 1600 INTRAVENOUS ; 1400 INTRAVENOUS
     Route: 042
     Dates: start: 20060127, end: 20060217
  2. GEMCITABINE [Suspect]
     Indication: TRANSITIONAL CELL CANCER OF RENAL PELVIS AND URETER METASTATIC
     Dosage: 1870 INTRAVENOUS ; 1600 INTRAVENOUS ; 1400 INTRAVENOUS
     Route: 042
     Dates: start: 20060303, end: 20060324
  3. GEMCITABINE [Suspect]
     Indication: TRANSITIONAL CELL CANCER OF RENAL PELVIS AND URETER METASTATIC
     Dosage: 1870 INTRAVENOUS ; 1600 INTRAVENOUS ; 1400 INTRAVENOUS
     Route: 042
     Dates: start: 20060407, end: 20060616
  4. PALONOSETROL [Concomitant]
  5. DECADRON [Concomitant]

REACTIONS (21)
  - AMMONIA INCREASED [None]
  - BONE MARROW FAILURE [None]
  - CHOLESTASIS [None]
  - COAGULOPATHY [None]
  - CONFUSIONAL STATE [None]
  - DISCOMFORT [None]
  - FEBRILE NEUTROPENIA [None]
  - FLUID RETENTION [None]
  - HAEMOPTYSIS [None]
  - HAEMORRHAGE [None]
  - HAEMORRHAGIC DISORDER [None]
  - HEPATIC FAILURE [None]
  - HEPATIC NECROSIS [None]
  - HYPOTENSION [None]
  - MENTAL STATUS CHANGES [None]
  - PANCYTOPENIA [None]
  - PROTHROMBIN TIME PROLONGED [None]
  - RENAL FAILURE [None]
  - RENAL FAILURE ACUTE [None]
  - SEPSIS [None]
  - THERAPEUTIC AGENT TOXICITY [None]
